FAERS Safety Report 9988268 (Version 2)
Quarter: 2014Q1

REPORT INFORMATION
  Report Type: Spontaneous
  Country: JP (occurrence: JP)
  Receive Date: 20140310
  Receipt Date: 20140331
  Transmission Date: 20141002
  Serious: Yes (Death, Other)
  Sender: FDA-Public Use
  Company Number: JP-AMGEN-JPNSP2014016299

PATIENT
  Age: 85 Year
  Sex: Male

DRUGS (7)
  1. ENBREL [Suspect]
     Indication: RHEUMATOID ARTHRITIS
     Dosage: 25 MG
     Route: 058
  2. PREDONINE                          /00016201/ [Concomitant]
     Dosage: UNK
  3. ALDACTONE                          /00006201/ [Concomitant]
     Dosage: UNK
  4. LANSOPRAZOLE [Concomitant]
     Dosage: UNK
  5. TANATRIL [Concomitant]
     Dosage: UNK
  6. LENDORMIN [Concomitant]
     Dosage: UNK
  7. GRAMALIL [Concomitant]
     Dosage: UNK

REACTIONS (2)
  - Marasmus [Fatal]
  - Hepatitis alcoholic [Unknown]
